FAERS Safety Report 10250412 (Version 1)
Quarter: 2014Q2

REPORT INFORMATION
  Report Type: Spontaneous
  Country: US (occurrence: None)
  Receive Date: 20140618
  Receipt Date: 20140618
  Transmission Date: 20141212
  Serious: No
  Sender: FDA-Public Use
  Company Number: None

PATIENT
  Age: 79 Year
  Sex: Female
  Weight: 74.39 kg

DRUGS (24)
  1. LOTEMAX (LOTEPREDNOL ETABONATE OPHTHALMIC GEL 0.5%) [Suspect]
     Indication: GLAUCOMA
     Dosage: QTY5?2 TIMES DAILY?DRUPS IN EACH EYE
     Dates: start: 20140516, end: 20140518
  2. ATENOLOL CHLORTHAL [Concomitant]
  3. BAYER ASPIRIN [Concomitant]
  4. KLOR CON [Concomitant]
  5. MEFORMIN [Concomitant]
  6. GLIPIZIDE [Concomitant]
  7. TRAVATAN HCL [Concomitant]
  8. AMLODIPINE BESYLATE [Concomitant]
  9. DEXILANT [Concomitant]
  10. DORZOLAMIDE HCL [Concomitant]
  11. VITAMIN MULTIVIAMINS WITH CALCIUM [Concomitant]
  12. OSCAL [Concomitant]
  13. D3 WITH CALCIUM [Concomitant]
  14. MECLIZINE [Concomitant]
  15. CLORAZEPATE [Concomitant]
  16. PRAVASTATIN [Concomitant]
  17. VITAMIN B-12 [Concomitant]
  18. ONE A DAY WOMEN MULTIVITAMIN-MULTI VITAMIN MINERAL SUPPLEMENT [Concomitant]
  19. ALLERGY RELIEF [Concomitant]
  20. DIPHENHYDRAMINE HCL [Concomitant]
  21. HYDROCODONE [Concomitant]
  22. ACETAMINOPHEN [Concomitant]
  23. CORICIDIN HBP [Concomitant]
  24. AZO [Concomitant]

REACTIONS (8)
  - Dizziness [None]
  - Feeling abnormal [None]
  - Vision blurred [None]
  - Somnolence [None]
  - Dizziness [None]
  - Headache [None]
  - Nausea [None]
  - Pharyngeal disorder [None]
